FAERS Safety Report 6292900-5 (Version None)
Quarter: 2009Q3

REPORT INFORMATION
  Report Type: 
  Country: None (occurrence: None)
  Receive Date: 20090731
  Receipt Date: 20090729
  Transmission Date: 20100115
  Serious: Yes (Death, Life-Threatening)
  Sender: FDA-Public Use
  Company Number: JP-JNJFOC-20090700982

PATIENT
  Sex: Male

DRUGS (12)
  1. DUROTEP MT [Suspect]
     Indication: CANCER PAIN
     Dosage: [2.1MG(1/4 AREA OF A  PATCH)]
     Route: 062
  2. OXYCONTIN [Concomitant]
     Indication: CANCER PAIN
     Route: 048
  3. MAGMITT [Concomitant]
     Indication: CONSTIPATION
     Route: 048
  4. MEXITIL [Concomitant]
     Route: 048
  5. FRANDOL [Concomitant]
     Route: 062
  6. LOXONIN [Concomitant]
     Indication: ANALGESIC THERAPY
     Route: 048
  7. BIOFERMIN [Concomitant]
     Indication: DIARRHOEA
     Route: 048
  8. GASTER D [Concomitant]
     Indication: GASTRITIS
     Route: 048
  9. ROHYPNOL [Concomitant]
     Indication: INSOMNIA
     Route: 048
  10. MOHRUS TAPE [Concomitant]
     Indication: ANALGESIC THERAPY
     Route: 062
  11. PAXIL [Concomitant]
     Indication: DEPRESSION
     Route: 048
  12. DIART [Concomitant]
     Route: 048

REACTIONS (3)
  - LUNG NEOPLASM MALIGNANT [None]
  - RESPIRATORY FAILURE [None]
  - WRONG TECHNIQUE IN DRUG USAGE PROCESS [None]
